FAERS Safety Report 11201292 (Version 1)
Quarter: 2015Q2

REPORT INFORMATION
  Report Type: Spontaneous
  Country: IT (occurrence: IT)
  Receive Date: 20150619
  Receipt Date: 20150619
  Transmission Date: 20150821
  Serious: Yes (Hospitalization)
  Sender: FDA-Public Use
  Company Number: IT-HOSPIRA-2640537

PATIENT
  Age: 53 Year
  Sex: Female

DRUGS (2)
  1. MABTHERA [Suspect]
     Active Substance: RITUXIMAB
     Indication: BLOOD STEM CELL HARVEST
     Route: 042
     Dates: start: 20110519, end: 20110519
  2. CYTARABINE. [Suspect]
     Active Substance: CYTARABINE
     Indication: BLOOD STEM CELL HARVEST
     Dosage: DAILY
     Route: 042
     Dates: start: 20110520, end: 20110521

REACTIONS (4)
  - Respiratory failure [Recovered/Resolved with Sequelae]
  - Sepsis [Recovered/Resolved with Sequelae]
  - Pneumonia [Unknown]
  - Multi-organ failure [Recovered/Resolved with Sequelae]

NARRATIVE: CASE EVENT DATE: 20110523
